FAERS Safety Report 12321610 (Version 1)
Quarter: 2016Q2

REPORT INFORMATION
  Report Type: Spontaneous
  Country: GB (occurrence: GB)
  Receive Date: 20160502
  Receipt Date: 20160502
  Transmission Date: 20160815
  Serious: Yes (Other)
  Sender: FDA-Public Use
  Company Number: GB-MYLANLABS-2016M1017531

PATIENT

DRUGS (1)
  1. ADENOSINE. [Suspect]
     Active Substance: ADENOSINE
     Indication: MYOCARDIAL BRIDGING
     Dosage: INFUSION
     Route: 065

REACTIONS (2)
  - Endothelial dysfunction [Unknown]
  - Vasospasm [Unknown]
